FAERS Safety Report 9479207 (Version 4)
Quarter: 2013Q4

REPORT INFORMATION
  Report Type: Report from Study
  Country: US (occurrence: US)
  Receive Date: 20130827
  Receipt Date: 20131218
  Transmission Date: 20140711
  Serious: Yes (Hospitalization, Other)
  Sender: FDA-Public Use
  Company Number: US-ACTELION-A-NJ2013-80268

PATIENT
  Age: 47 Year
  Sex: Female

DRUGS (8)
  1. VELETRI [Suspect]
     Indication: PULMONARY ARTERIAL HYPERTENSION
     Dosage: 13 NG/KG, PER MIN
     Route: 041
     Dates: start: 20130201
  2. FLOLAN [Concomitant]
  3. REVATIO [Concomitant]
     Dosage: 40 MG, TID
  4. COUMADIN [Concomitant]
     Dosage: 5 MG, UNK
  5. LASIX [Concomitant]
  6. CARDIZEM [Concomitant]
     Dosage: 45 MG, Q8HRS
  7. BUMEX [Concomitant]
     Dosage: 2 MG, BID
  8. ALDACTONE [Concomitant]
     Dosage: 25 MG, UNK

REACTIONS (17)
  - Blood glucose decreased [Not Recovered/Not Resolved]
  - Hypotension [Not Recovered/Not Resolved]
  - Tachycardia [Not Recovered/Not Resolved]
  - Right ventricular failure [Unknown]
  - Ascites [Unknown]
  - Condition aggravated [Recovered/Resolved]
  - Malaise [Unknown]
  - Gastric ulcer [Unknown]
  - Peritonitis bacterial [Recovered/Resolved]
  - Atrial fibrillation [Unknown]
  - Atrial flutter [Unknown]
  - Palpitations [Unknown]
  - Fluid retention [Not Recovered/Not Resolved]
  - Oedema [Not Recovered/Not Resolved]
  - Weight increased [Not Recovered/Not Resolved]
  - Blood culture negative [Recovered/Resolved]
  - Catheter site erythema [Unknown]
